FAERS Safety Report 7014934-5 (Version None)
Quarter: 2010Q3

REPORT INFORMATION
  Report Type: 
  Country: None (occurrence: None)
  Receive Date: 20100927
  Receipt Date: 20100129
  Transmission Date: 20110219
  Serious: No
  Sender: FDA-Public Use
  Company Number: US-ASTRAZENECA-2009SE17903

PATIENT
  Age: 27764 Day
  Sex: Female

DRUGS (1)
  1. ARIMIDEX [Suspect]
     Indication: BREAST CANCER
     Route: 048

REACTIONS (10)
  - ARTHRALGIA [None]
  - CARDIAC FAILURE CONGESTIVE [None]
  - COUGH [None]
  - DEPRESSION [None]
  - INSOMNIA [None]
  - LYMPHADENOPATHY [None]
  - MUSCULOSKELETAL CHEST PAIN [None]
  - NAUSEA [None]
  - OROPHARYNGEAL PAIN [None]
  - SINUSITIS [None]
